FAERS Safety Report 7426132-1 (Version None)
Quarter: 2011Q2

REPORT INFORMATION
  Report Type: 
  Country: None (occurrence: None)
  Receive Date: 20110420
  Receipt Date: 20110408
  Transmission Date: 20111010
  Serious: Yes (Other)
  Sender: FDA-Public Use
  Company Number: PHEH2008US06330

PATIENT
  Sex: Female
  Weight: 45.351 kg

DRUGS (68)
  1. PERIDEX [Concomitant]
  2. TAMOXIFEN [Concomitant]
  3. SIMVASTATIN [Concomitant]
     Dosage: 20 , DAILY
  4. EVOXAC [Concomitant]
     Dosage: 30MG
  5. TOBRADEX [Concomitant]
     Dosage: UNK
  6. PRAVACHOL [Concomitant]
     Dosage: 20 MG
  7. MACROBID [Concomitant]
     Dosage: 100 MG
  8. MECLIZINE [Concomitant]
     Dosage: 12.5 MG
  9. CHLORHEXIDINE GLUCONATE [Concomitant]
     Dosage: UNK
  10. TRIAMCINOLONE [Concomitant]
     Dosage: UNK
  11. TRETINOIN [Concomitant]
     Dosage: UNK
  12. XANAX [Concomitant]
  13. BACTRIM [Concomitant]
  14. RALOXIFENE HYDROCHLORIDE [Concomitant]
  15. CITALOPRAM HYDROBROMIDE [Concomitant]
  16. CLINDAMYCIN [Concomitant]
  17. MULTIVITAMIN ^LAPPE^ [Concomitant]
  18. FOLIC ACID [Concomitant]
     Dosage: 1 MG, DAILY
  19. ZOCOR [Concomitant]
     Dosage: 10 MG
  20. PROPOXYPHENE NAPSYLATE [Concomitant]
     Dosage: UNK
  21. FOSAMAX [Concomitant]
     Dosage: UNK
  22. CIPROFLOXACIN HCL [Concomitant]
     Dosage: 500 MG
  23. DIPHENOXYLATE HCL AND ATROPINE SULFATE [Concomitant]
     Dosage: UNK
  24. SKELAXIN [Concomitant]
     Dosage: 800 MG
  25. PRILOSEC [Concomitant]
     Dosage: 40 MG
     Dates: start: 20050218
  26. DIAZEPAM [Concomitant]
     Dosage: 5 MG
  27. DIPHENHYDRAMINE [Concomitant]
     Dosage: 50 MG
  28. CENTRUM SILVER [Concomitant]
  29. EVISTA [Concomitant]
  30. ZOMETA [Suspect]
     Indication: OSTEOPOROSIS
     Dosage: 3 MG/4 MG
     Dates: start: 20040322, end: 20051102
  31. OXYCODONE HCL AND ACETAMINOPHEN [Concomitant]
     Dosage: UNK
  32. PROCHLORPERAZINE TAB [Concomitant]
     Dosage: 5 MG
  33. METROLOTION [Concomitant]
     Dosage: UNK
     Route: 061
  34. ACETIC ACID [Concomitant]
     Dosage: UNK
  35. ERYTHROMYCIN [Concomitant]
     Dosage: UNK
  36. NITROFURANTOIN [Concomitant]
     Dosage: UNK
  37. FLEXERIL [Concomitant]
  38. RANITIDINE HYDROCHLORIDE [Concomitant]
  39. CALCIUM [Concomitant]
  40. AVITA [Concomitant]
     Dosage: UNK
  41. ZYRTEC [Concomitant]
     Dosage: 10 MG
  42. TANNIC ACID [Concomitant]
     Dosage: UNK
  43. LEVAQUIN [Concomitant]
     Dosage: 500 MG
  44. CLARITHROMYCIN [Concomitant]
     Dosage: 500 MG
  45. COMBGEN [Concomitant]
     Dosage: UNK
  46. ASPIRIN [Concomitant]
  47. PROPRANOLOL HYDROCHLORIDE [Concomitant]
  48. ZANTAC [Concomitant]
     Dosage: 300 MG
     Dates: start: 20050218
  49. ZITHROMAX [Concomitant]
     Dosage: 250 MG
  50. RHINOCORT [Concomitant]
     Dosage: UNK
     Route: 045
  51. TAMIFLU [Concomitant]
     Dosage: 75 MG
  52. CITRACAL PLUS [Concomitant]
  53. FLAGYL [Concomitant]
     Dosage: 500 MG, QID FOR 6 DAYS
  54. FASLODEX [Concomitant]
  55. ZEN [Concomitant]
  56. PROPRANOLOL [Concomitant]
  57. LIPITOR [Concomitant]
     Dosage: 10 MG
  58. CHOLESTYRAMINE RESIN [Concomitant]
     Dosage: UNK
  59. ALPRAZOLAM [Concomitant]
     Dosage: 0.25 MG
  60. FISH OIL [Concomitant]
  61. PREVACID [Concomitant]
  62. MIACALCIN [Concomitant]
  63. FEMARA [Concomitant]
     Dosage: 2.5 , DAILY
  64. HYDROCODONE [Concomitant]
     Dosage: UNK
  65. ISOXSUPRINE HCL [Concomitant]
     Dosage: 10 MG
  66. ALLEGRA [Concomitant]
     Dosage: UNK
  67. LESCOL XL [Concomitant]
     Dosage: 80 MG
  68. ISOXSUPRINE HCL [Concomitant]

REACTIONS (95)
  - CELLULITIS [None]
  - DISCOMFORT [None]
  - GINGIVAL BLEEDING [None]
  - OROPHARYNGEAL PAIN [None]
  - MYALGIA [None]
  - FEELING JITTERY [None]
  - DYSPNOEA [None]
  - DECREASED APPETITE [None]
  - GINGIVAL HYPERPLASIA [None]
  - ACUTE SINUSITIS [None]
  - GASTROINTESTINAL TRACT ADENOMA [None]
  - MELANOCYTIC NAEVUS [None]
  - HYPOPHAGIA [None]
  - SCAR [None]
  - ANXIETY [None]
  - PHYSICAL DISABILITY [None]
  - REFLUX OESOPHAGITIS [None]
  - FRACTURED SACRUM [None]
  - EUSTACHIAN TUBE DYSFUNCTION [None]
  - HYPERTENSION [None]
  - MALAISE [None]
  - THYROID NEOPLASM [None]
  - CONTUSION [None]
  - GASTROINTESTINAL MUCOSAL DISORDER [None]
  - ISCHAEMIA [None]
  - LIFE EXPECTANCY SHORTENED [None]
  - ANHEDONIA [None]
  - OSTEOLYSIS [None]
  - INFLUENZA [None]
  - JAW DISORDER [None]
  - ROTATOR CUFF SYNDROME [None]
  - FACIAL PAIN [None]
  - THYROID ADENOMA [None]
  - CONSTIPATION [None]
  - OSTEONECROSIS OF JAW [None]
  - BONE DENSITY DECREASED [None]
  - BONE DISORDER [None]
  - TOOTH IMPACTED [None]
  - RESPIRATORY DISORDER [None]
  - AORTIC ARTERIOSCLEROSIS [None]
  - SJOGREN'S SYNDROME [None]
  - OROPHARYNGEAL PLAQUE [None]
  - VIRAL INFECTION [None]
  - DENTURE WEARER [None]
  - CHRONIC OBSTRUCTIVE PULMONARY DISEASE [None]
  - TREMOR [None]
  - DIZZINESS [None]
  - SPINAL CORD DISORDER [None]
  - ORAL HERPES [None]
  - PERIODONTAL DISEASE [None]
  - NODULE [None]
  - DRY MOUTH [None]
  - FIBROSIS [None]
  - BACK PAIN [None]
  - INFLAMMATION [None]
  - EMOTIONAL DISTRESS [None]
  - OSTEOMYELITIS [None]
  - GOITRE [None]
  - CHRONIC SINUSITIS [None]
  - FALL [None]
  - MUSCULOSKELETAL PAIN [None]
  - MUCOSAL DRYNESS [None]
  - DYSPHONIA [None]
  - GINGIVAL DISORDER [None]
  - GINGIVAL OEDEMA [None]
  - IMPETIGO [None]
  - PAIN [None]
  - INJURY [None]
  - PAIN IN JAW [None]
  - DIARRHOEA [None]
  - LIPIDS INCREASED [None]
  - OSTEOARTHRITIS [None]
  - SPINAL OSTEOARTHRITIS [None]
  - HEART RATE INCREASED [None]
  - HEART RATE IRREGULAR [None]
  - COUGH [None]
  - OSTEOPENIA [None]
  - SICCA SYNDROME [None]
  - GINGIVAL RECESSION [None]
  - EAR HAEMORRHAGE [None]
  - FATIGUE [None]
  - NECK PAIN [None]
  - GAIT DISTURBANCE [None]
  - HIATUS HERNIA [None]
  - MITRAL VALVE INCOMPETENCE [None]
  - PALPITATIONS [None]
  - SPEECH DISORDER [None]
  - STOMATITIS [None]
  - GINGIVITIS [None]
  - FISTULA [None]
  - VITREOUS HAEMORRHAGE [None]
  - LARYNGEAL OEDEMA [None]
  - LACERATION [None]
  - SUBGALEAL HAEMATOMA [None]
  - ANGIOPATHY [None]
